FAERS Safety Report 18639933 (Version 1)
Quarter: 2020Q4

REPORT INFORMATION
  Report Type: Spontaneous
  Country: US (occurrence: US)
  Receive Date: 20201220
  Receipt Date: 20201220
  Transmission Date: 20210114
  Serious: No
  Sender: FDA-Public Use
  Company Number: US-PACIRA-202000045

PATIENT

DRUGS (6)
  1. 0.25% BUPIVACAINE [Suspect]
     Active Substance: BUPIVACAINE
     Indication: HIP SURGERY
     Dosage: 30 ML+ EXPAREL 266 MG+1:1000 EPINEPHRINE 0.5 ML+30 MG KETOROLAC+4 MG MORPHINE+30 ML SALINE
     Route: 065
  2. EPINEPHRINE. [Suspect]
     Active Substance: EPINEPHRINE
     Indication: HIP SURGERY
     Dosage: 1:1000 0.5 ML+EXPAREL 266 MG+0.25% BUPIVACAINE 30 ML+30 MG KETOROLAC+4 MG MORPHINE+30 ML SALINE
     Route: 065
  3. EXPAREL [Suspect]
     Active Substance: BUPIVACAINE
     Indication: HIP SURGERY
     Dosage: 266 MG+0.25% BUPIVACAINE 30 ML+1:1000 EPINEPHRINE 0.5 ML+30 MG KETOROLAC+4 MG MORPHINE +30 ML SALINE
     Route: 065
  4. NORMAL SALINE [Suspect]
     Active Substance: SODIUM CHLORIDE
     Indication: HIP SURGERY
     Dosage: 30 ML+EXPAREL 266 MG+0.25% BUPIVACAINE 30 ML+1:1000 EPINEPHRINE 0.5 ML+30 MG KETOROLAC+4 MG MORPHINE
     Route: 065
  5. MORPHINE [Suspect]
     Active Substance: MORPHINE
     Indication: HIP SURGERY
     Dosage: 4 MG+EXPAREL 266 MG+0.25% BUPIVACAINE 30 ML+1:1000 EPINEPHRINE 0.5 ML+30 MG KETOROLAC +30 ML SALINE
     Route: 065
  6. KETOROLAC [Suspect]
     Active Substance: KETOROLAC TROMETHAMINE
     Indication: HIP SURGERY
     Dosage: 30 MG+EXPAREL 266 MG+0.25% BUPIVACAINE 30 ML+1:1000 EPINEPHRINE 0.5 ML+4 MG MORPHINE+30 ML SALINE
     Route: 065

REACTIONS (1)
  - Labelled drug-drug interaction medication error [Unknown]
